FAERS Safety Report 24547414 (Version 1)
Quarter: 2024Q4

REPORT INFORMATION
  Report Type: Spontaneous
  Country: GB (occurrence: GB)
  Receive Date: 20241025
  Receipt Date: 20241025
  Transmission Date: 20250115
  Serious: Yes (Other)
  Sender: TEVA
  Company Number: GB-MHRA-TPP63324063C21068660YC1729000335103

PATIENT
  Age: 78 Year
  Sex: Female
  Weight: 53 kg

DRUGS (1)
  1. HALOPERIDOL [Suspect]
     Active Substance: HALOPERIDOL
     Indication: Ill-defined disorder
     Route: 048
     Dates: start: 20241011, end: 20241012

REACTIONS (4)
  - Hallucination [Recovered/Resolved]
  - Anxiety [Recovered/Resolved]
  - Headache [Recovered/Resolved]
  - Confusional state [Recovered/Resolved]

NARRATIVE: CASE EVENT DATE: 20241011
